FAERS Safety Report 5896150-3 (Version None)
Quarter: 2008Q3

REPORT INFORMATION
  Report Type: 
  Country: None (occurrence: None)
  Receive Date: 20080924
  Receipt Date: 20070920
  Transmission Date: 20090109
  Serious: Yes (Other)
  Sender: FDA-Public Use
  Company Number: US-ASTRAZENECA-2007UW07540

PATIENT
  Age: 66 Year
  Sex: Female
  Weight: 74.8 kg

DRUGS (17)
  1. SEROQUEL [Suspect]
     Indication: NERVOUSNESS
     Route: 048
     Dates: start: 20020101, end: 20050101
  2. SEROQUEL [Suspect]
     Indication: ANXIETY
     Route: 048
     Dates: start: 20020101, end: 20050101
  3. SEROQUEL [Suspect]
     Indication: SCHIZOPHRENIA
     Route: 048
     Dates: start: 20020101, end: 20050101
  4. ZYPREXA [Concomitant]
  5. ZOLOFT [Concomitant]
  6. BENZTROPIN [Concomitant]
  7. HYDROCHLOROTHIAZIDE [Concomitant]
  8. DYPHLLINE [Concomitant]
  9. GUANFACINE HYDROCHLORIDE [Concomitant]
  10. ALTACE [Concomitant]
  11. ZITHROMAX [Concomitant]
  12. ZYPREXA [Concomitant]
  13. QUINARETIC [Concomitant]
  14. NORVASC [Concomitant]
  15. FLUPHENAZINE [Concomitant]
  16. LOTREL [Concomitant]
  17. TRIAMTERENE/HCT [Concomitant]

REACTIONS (4)
  - BLOOD CHOLESTEROL INCREASED [None]
  - DEHYDRATION [None]
  - DIABETES MELLITUS [None]
  - TARDIVE DYSKINESIA [None]
